FAERS Safety Report 25979468 (Version 2)
Quarter: 2025Q4

REPORT INFORMATION
  Report Type: Spontaneous
  Country: EU (occurrence: EU)
  Receive Date: 20251030
  Receipt Date: 20251031
  Transmission Date: 20260118
  Serious: Yes (Hospitalization, Other)
  Sender: HETERO
  Company Number: None

PATIENT
  Age: 49 Year
  Sex: Male

DRUGS (3)
  1. FLUCONAZOLE [Suspect]
     Active Substance: FLUCONAZOLE
     Indication: Skin candida
     Dosage: 1 WEEKLY
     Route: 048
     Dates: start: 20250829
  2. IBUPROFEN [Suspect]
     Active Substance: IBUPROFEN
     Indication: Muscle rupture
     Dosage: 600 MILLIGRAM, TID
     Route: 048
     Dates: start: 20250622
  3. FUNGAREST [KETOCONAZOLE] [Concomitant]
     Indication: Skin candida
     Dosage: 1 DOSAGE FORM, BID
     Route: 065
     Dates: start: 20250829

REACTIONS (5)
  - Acute kidney injury [Recovering/Resolving]
  - Cutaneous vasculitis [Recovering/Resolving]
  - IgA nephropathy [Recovering/Resolving]
  - Henoch-Schonlein purpura [Recovering/Resolving]
  - Off label use [Unknown]

NARRATIVE: CASE EVENT DATE: 20250829
